FAERS Safety Report 21285240 (Version 1)
Quarter: 2022Q3

REPORT INFORMATION
  Report Type: Spontaneous
  Country: US (occurrence: US)
  Receive Date: 20220902
  Receipt Date: 20220902
  Transmission Date: 20221027
  Serious: Yes (Death, Other)
  Sender: FDA-Public Use
  Company Number: US-SA-SAC20220831000600

PATIENT
  Age: 68 Year
  Sex: Male
  Weight: 76 kg

DRUGS (2)
  1. COPIKTRA [Suspect]
     Active Substance: DUVELISIB
     Indication: Oral cavity cancer metastatic
     Dosage: UNK
  2. TAXOTERE [Suspect]
     Active Substance: DOCETAXEL
     Indication: Oral cavity cancer metastatic
     Dosage: UNK

REACTIONS (6)
  - Pulmonary thrombosis [Fatal]
  - Abdominal distension [Fatal]
  - General physical health deterioration [Fatal]
  - Pulmonary haemorrhage [Fatal]
  - Vomiting [Fatal]
  - Disease progression [Fatal]

NARRATIVE: CASE EVENT DATE: 20220323
